FAERS Safety Report 14459634 (Version 1)
Quarter: 2018Q1

REPORT INFORMATION
  Report Type: Spontaneous
  Country: US (occurrence: US)
  Receive Date: 20180129
  Receipt Date: 20180129
  Transmission Date: 20180509
  Serious: Yes (Hospitalization)
  Sender: FDA-Public Use
  Company Number: None

PATIENT
  Age: 56 Year
  Sex: Female

DRUGS (8)
  1. MONTELUCAST [Concomitant]
     Active Substance: MONTELUKAST SODIUM
  2. PULMICORT TURBUHALER [Concomitant]
     Active Substance: BUDESONIDE
  3. ENBREL [Suspect]
     Active Substance: ETANERCEPT
     Indication: PSORIASIS
     Dosage: ?          OTHER FREQUENCY:QW;?
     Route: 058
     Dates: start: 20161118
  4. OTEZLA [Concomitant]
     Active Substance: APREMILAST
  5. VENTOLIN [Concomitant]
     Active Substance: ALBUTEROL SULFATE
  6. OMEPRAZOLE. [Concomitant]
     Active Substance: OMEPRAZOLE
  7. SIMVASTATIN. [Concomitant]
     Active Substance: SIMVASTATIN
  8. PROLIA [Suspect]
     Active Substance: DENOSUMAB
     Indication: PSORIASIS
     Dosage: OTHER FREQUENCY:Q6M;?
     Route: 058
     Dates: start: 20171101

REACTIONS (6)
  - Muscle spasms [None]
  - Drug ineffective [None]
  - Asthenia [None]
  - Pain in extremity [None]
  - Sleep disorder [None]
  - Impaired work ability [None]

NARRATIVE: CASE EVENT DATE: 20171114
